FAERS Safety Report 17693814 (Version 1)
Quarter: 2020Q2

REPORT INFORMATION
  Report Type: Spontaneous
  Country: DE (occurrence: DE)
  Receive Date: 20200422
  Receipt Date: 20200422
  Transmission Date: 20200714
  Serious: Yes (Congenital Anomaly)
  Sender: FDA-Public Use
  Company Number: NVSC2020DE107258

PATIENT
  Age: 1 Day
  Sex: Male
  Weight: 1.11 kg

DRUGS (9)
  1. SALBUTAMOL [Concomitant]
     Active Substance: ALBUTEROL
     Indication: FOETAL EXPOSURE DURING PREGNANCY
     Dosage: UNK
     Route: 064
     Dates: start: 20180822, end: 20181108
  2. FOLSAEURE [Concomitant]
     Active Substance: FOLIC ACID
     Indication: FOETAL EXPOSURE DURING PREGNANCY
     Dosage: (MATERNAL DOSE: 5 [MG/D ])
     Route: 064
     Dates: start: 20180822, end: 20190417
  3. DOXYLAMINE [Concomitant]
     Active Substance: DOXYLAMINE
     Indication: FOETAL EXPOSURE DURING PREGNANCY
     Dosage: (MATERNAL DOSE: UNK)
     Route: 064
  4. LAMOTRIGINE. [Suspect]
     Active Substance: LAMOTRIGINE
     Indication: FOETAL EXPOSURE DURING PREGNANCY
     Dosage: (MATERNAL DOSE: (400 [MG/D (BIS 100) ]/ INITIAL 100MG/D, DOSAGE INCREASED TO 400MG/D)
     Route: 064
     Dates: start: 20180822, end: 20190417
  5. L-THYROXINE [Concomitant]
     Active Substance: LEVOTHYROXINE
     Indication: FOETAL EXPOSURE DURING PREGNANCY
     Dosage: (MATERNAL DOSE: 75 [?G/D ]/ 50 - 75 ?G/D)
     Route: 064
     Dates: start: 20180822, end: 20181108
  6. MECLIZINE [Concomitant]
     Active Substance: MECLIZINE HYDROCHLORIDE
     Indication: FOETAL EXPOSURE DURING PREGNANCY
     Dosage: (MATERNAL DOSE: UNK)
     Route: 064
  7. SYMBICORT [Concomitant]
     Active Substance: BUDESONIDE\FORMOTEROL FUMARATE DIHYDRATE
     Indication: FOETAL EXPOSURE DURING PREGNANCY
     Dosage: (MATERNAL DOSE: UNK)
     Route: 064
     Dates: start: 20180822, end: 20181108
  8. DIMENHYDRINAT [Concomitant]
     Active Substance: DIMENHYDRINATE
     Indication: FOETAL EXPOSURE DURING PREGNANCY
     Dosage: (MATERNAL DOSE: UNK)
     Route: 064
  9. JODID [Concomitant]
     Active Substance: IODINE
     Indication: FOETAL EXPOSURE DURING PREGNANCY
     Dosage: (MATERNAL DOSE: UNK)
     Route: 064
     Dates: start: 20180822, end: 20181108

REACTIONS (1)
  - Epispadias [Unknown]

NARRATIVE: CASE EVENT DATE: 20190417
